FAERS Safety Report 4341617-2 (Version None)
Quarter: 2004Q2

REPORT INFORMATION
  Report Type: 
  Country: None (occurrence: None)
  Receive Date: 20040419
  Receipt Date: 20040419
  Transmission Date: 20050107
  Serious: Yes (Other)
  Sender: FDA-Public Use
  Company Number: None

PATIENT
  Age: 81 Year
  Sex: Female
  Weight: 51.2565 kg

DRUGS (1)
  1. FORTEO [Suspect]
     Indication: OSTEOPENIA
     Dosage: 20 MCG QD IM
     Route: 030
     Dates: start: 20030812, end: 20040317

REACTIONS (3)
  - CALCULUS BLADDER [None]
  - HAEMORRHAGE [None]
  - URINARY TRACT INFECTION [None]
